FAERS Safety Report 6709685-8 (Version None)
Quarter: 2010Q2

REPORT INFORMATION
  Report Type: 
  Country: None (occurrence: None)
  Receive Date: 20100503
  Receipt Date: 20100503
  Transmission Date: 20101027
  Serious: Yes (Hospitalization)
  Sender: FDA-Public Use
  Company Number: None

PATIENT
  Age: 2 Year
  Sex: Female
  Weight: 12.7007 kg

DRUGS (1)
  1. CONCENTRATED MOTRIN INFANTS DROPS [Suspect]

REACTIONS (4)
  - DIARRHOEA [None]
  - HAEMATOCHEZIA [None]
  - PRODUCT CONTAMINATION PHYSICAL [None]
  - PRODUCT QUALITY ISSUE [None]
